FAERS Safety Report 15425010 (Version 2)
Quarter: 2018Q4

REPORT INFORMATION
  Report Type: Spontaneous
  Country: US (occurrence: US)
  Receive Date: 20180925
  Receipt Date: 20181106
  Transmission Date: 20190204
  Serious: Yes (Other)
  Sender: FDA-Public Use
  Company Number: US-AKORN PHARMACEUTICALS-2018AKN01410

PATIENT
  Age: 15 Year
  Sex: Male
  Weight: 65.7 kg

DRUGS (2)
  1. MYORISAN [Suspect]
     Active Substance: ISOTRETINOIN
     Dosage: 30 MG, 1X/DAY
     Route: 048
     Dates: start: 20180710, end: 20180910
  2. MYORISAN [Suspect]
     Active Substance: ISOTRETINOIN
     Indication: ACNE
     Dosage: 30 MG, 1X/DAY
     Route: 048
     Dates: start: 20180410, end: 20180510

REACTIONS (4)
  - Suicidal ideation [Unknown]
  - Off label use [Recovered/Resolved]
  - Depression [Unknown]
  - Dermatitis [Unknown]

NARRATIVE: CASE EVENT DATE: 2018
